FAERS Safety Report 5465298-X (Version None)
Quarter: 2007Q3

REPORT INFORMATION
  Report Type: 
  Country: None (occurrence: None)
  Receive Date: 20070920
  Receipt Date: 20070906
  Transmission Date: 20080115
  Serious: Yes (Other)
  Sender: FDA-Public Use
  Company Number: DEP_00073_2007

PATIENT
  Sex: Female
  Weight: 90.7194 kg

DRUGS (3)
  1. METFORMIN HYDROCHLORIDE [Suspect]
     Indication: DIABETES MELLITUS
     Dosage: (500 MG BID ORAL)
     Route: 048
     Dates: start: 20070628, end: 20070723
  2. LISINOPRIL [Concomitant]
  3. TOPRAL [Concomitant]

REACTIONS (2)
  - ANGIOEDEMA [None]
  - OEDEMA PERIPHERAL [None]
